FAERS Safety Report 5266486-8 (Version None)
Quarter: 2007Q1

REPORT INFORMATION
  Report Type: 
  Country: None (occurrence: None)
  Receive Date: 20070315
  Receipt Date: 20070312
  Transmission Date: 20070707
  Serious: Yes (Hospitalization)
  Sender: FDA-Public Use
  Company Number: JP-BRISTOL-MYERS SQUIBB COMPANY-13702170

PATIENT
  Age: 71 Year
  Sex: Female
  Weight: 33 kg

DRUGS (11)
  1. GATIFLOXACIN [Suspect]
     Indication: MYCOBACTERIAL INFECTION
     Route: 048
     Dates: start: 20050401, end: 20060101
  2. RIFADIN [Suspect]
     Route: 048
     Dates: start: 20020101
  3. RIFADIN [Suspect]
     Route: 048
     Dates: start: 20020101
  4. CLARITHROMYCIN [Concomitant]
     Route: 048
  5. SELBEX [Concomitant]
     Route: 048
  6. PLETAL [Concomitant]
     Route: 048
  7. FRANDOL [Concomitant]
     Route: 048
  8. DILTIAZEM HCL [Concomitant]
     Route: 048
  9. THYRADIN S [Concomitant]
     Route: 048
  10. CORTRIL [Concomitant]
     Route: 048
  11. RACOL [Concomitant]
     Route: 048

REACTIONS (1)
  - HYPOGLYCAEMIC COMA [None]
